FAERS Safety Report 4555221-4 (Version None)
Quarter: 2004Q4

REPORT INFORMATION
  Report Type: 
  Country: None (occurrence: None)
  Receive Date: 20041217
  Receipt Date: 20040830
  Transmission Date: 20050328
  Serious: No
  Sender: FDA-Public Use
  Company Number: 2004-BP-07459BP

PATIENT
  Age: 61 Year
  Sex: Female

DRUGS (4)
  1. SPIRIVA [Suspect]
     Indication: CHRONIC OBSTRUCTIVE AIRWAYS DISEASE
     Dosage: (18 MCG), IH
     Route: 055
     Dates: start: 20040727, end: 20040828
  2. PREVACID [Concomitant]
  3. STALEVO (STALEVO) [Concomitant]
  4. AZMACORT [Concomitant]

REACTIONS (3)
  - BRONCHITIS [None]
  - CHEST PAIN [None]
  - LYMPH NODE PAIN [None]
